FAERS Safety Report 15546599 (Version 4)
Quarter: 2018Q4

REPORT INFORMATION
  Report Type: Report from Study
  Country: CO (occurrence: CO)
  Receive Date: 20181024
  Receipt Date: 20181211
  Transmission Date: 20190205
  Serious: Yes (Death, Hospitalization)
  Sender: FDA-Public Use
  Company Number: CO-JNJFOC-20181025938

PATIENT
  Age: 38 Year
  Sex: Male
  Weight: 47 kg

DRUGS (1)
  1. IMBRUVICA [Suspect]
     Active Substance: IBRUTINIB
     Indication: CHRONIC LYMPHOCYTIC LEUKAEMIA
     Route: 048
     Dates: start: 20180925

REACTIONS (13)
  - Infectious pleural effusion [Unknown]
  - Ecchymosis [Unknown]
  - Respiratory failure [Fatal]
  - Cytomegalovirus infection [Not Recovered/Not Resolved]
  - Oxygen saturation decreased [Unknown]
  - Eating disorder [Not Recovered/Not Resolved]
  - Nausea [Not Recovered/Not Resolved]
  - Petechiae [Not Recovered/Not Resolved]
  - Thrombocytopenia [Not Recovered/Not Resolved]
  - Mouth ulceration [Not Recovered/Not Resolved]
  - Decreased appetite [Unknown]
  - Anaemia [Unknown]
  - Lymphoma [Unknown]

NARRATIVE: CASE EVENT DATE: 201810
